FAERS Safety Report 12157752 (Version 1)
Quarter: 2016Q1

REPORT INFORMATION
  Report Type: Spontaneous
  Country: US (occurrence: US)
  Receive Date: 20160308
  Receipt Date: 20160308
  Transmission Date: 20160526
  Serious: No
  Sender: FDA-Public Use
  Company Number: US-JNJFOC-20141206600

PATIENT
  Age: 80 Year
  Sex: Male

DRUGS (4)
  1. ADVIL [Concomitant]
     Active Substance: IBUPROFEN
  2. IMBRUVICA [Suspect]
     Active Substance: IBRUTINIB
     Indication: CHRONIC LYMPHOCYTIC LEUKAEMIA
     Route: 048
     Dates: start: 201411
  3. IMBRUVICA [Suspect]
     Active Substance: IBRUTINIB
     Indication: CHRONIC LYMPHOCYTIC LEUKAEMIA
     Route: 048
     Dates: start: 201405, end: 201411
  4. DRUGS FOR ACID RELATED DISORDERS [Concomitant]
     Active Substance: UNSPECIFIED INGREDIENT
     Indication: DYSPEPSIA
     Dosage: QPM

REACTIONS (1)
  - Tooth fracture [Recovered/Resolved]

NARRATIVE: CASE EVENT DATE: 201411
